FAERS Safety Report 8954847 (Version 2)
Quarter: 2013Q1

REPORT INFORMATION
  Report Type: Spontaneous
  Country: BR (occurrence: BR)
  Receive Date: 20121207
  Receipt Date: 20130208
  Transmission Date: 20140127
  Serious: Yes (Hospitalization)
  Sender: FDA-Public Use
  Company Number: BR-ASTRAZENECA-2012SE90646

PATIENT
  Age: 27 Year
  Sex: Female

DRUGS (1)
  1. SYMBICORT TURBUHALER [Suspect]
     Indication: ASTHMA
     Dosage: 320/9 MCG, BID
     Route: 055
     Dates: start: 2011

REACTIONS (2)
  - Asthma [Recovering/Resolving]
  - Dyspnoea [Recovered/Resolved]
